FAERS Safety Report 7114075-2 (Version None)
Quarter: 2010Q4

REPORT INFORMATION
  Report Type: 
  Country: None (occurrence: None)
  Receive Date: 20101119
  Receipt Date: 20101116
  Transmission Date: 20110411
  Serious: Yes (Death, Hospitalization)
  Sender: FDA-Public Use
  Company Number: US-AMGEN-KDC396828

PATIENT

DRUGS (6)
  1. PANITUMUMAB [Suspect]
     Indication: COLORECTAL CANCER
     Dosage: 450 MG, Q2WK
     Route: 042
     Dates: start: 20100225, end: 20100225
  2. ACETAMINOPHEN AND OXYCODONE HCL [Concomitant]
     Dosage: 15 MG, UNK
  3. MORPHINE SULFATE [Concomitant]
     Dosage: 60 MG, UNK
  4. PROCHLORPERAZINE EDISYLATE [Concomitant]
     Dosage: 10 MG, UNK
  5. LOPERAMIDE HYDROCHLORIDE [Concomitant]
  6. PROMETHAZINE HYDROCHLORIDE [Concomitant]
     Dosage: 50 MG, UNK

REACTIONS (15)
  - APHAGIA [None]
  - COLORECTAL CANCER METASTATIC [None]
  - DYSPNOEA [None]
  - HYPERHIDROSIS [None]
  - INAPPROPRIATE ANTIDIURETIC HORMONE SECRETION [None]
  - MALIGNANT NEOPLASM PROGRESSION [None]
  - MYOCARDIAL INFARCTION [None]
  - MYOCARDIAL ISCHAEMIA [None]
  - NON-SMALL CELL LUNG CANCER [None]
  - PLEURAL EFFUSION [None]
  - PNEUMONIA [None]
  - PNEUMONIA ASPIRATION [None]
  - PRODUCTIVE COUGH [None]
  - SEPSIS [None]
  - TACHYCARDIA [None]
